FAERS Safety Report 6713387-1 (Version None)
Quarter: 2010Q2

REPORT INFORMATION
  Report Type: 
  Country: None (occurrence: None)
  Receive Date: 20100506
  Receipt Date: 20100422
  Transmission Date: 20101027
  Serious: Yes (Hospitalization)
  Sender: FDA-Public Use
  Company Number: DE-ROCHE-700467

PATIENT
  Sex: Female
  Weight: 51.6 kg

DRUGS (2)
  1. BEVACIZUMAB [Suspect]
     Dosage: 4TH CYCLE
     Route: 042
     Dates: end: 20100412
  2. TAXOTERE [Concomitant]
     Dosage: APPLICATION ON 12-APR-2010, 4TH CYCLE
     Route: 042

REACTIONS (2)
  - HAEMOGLOBIN DECREASED [None]
  - INTESTINAL PERFORATION [None]
